FAERS Safety Report 10412394 (Version 1)
Quarter: 2014Q3

REPORT INFORMATION
  Report Type: Spontaneous
  Country: BR (occurrence: BR)
  Receive Date: 20140827
  Receipt Date: 20140827
  Transmission Date: 20150326
  Serious: Yes (Hospitalization, Other)
  Sender: FDA-Public Use
  Company Number: BR-ELI_LILLY_AND_COMPANY-BR201408005894

PATIENT
  Sex: Male
  Weight: 70 kg

DRUGS (3)
  1. HUMULIN N [Suspect]
     Active Substance: INSULIN HUMAN
     Dosage: 15 IU, QD
     Route: 058
     Dates: start: 2014
  2. LINAGLIPTIN [Concomitant]
     Active Substance: LINAGLIPTIN
     Dosage: UNK, UNKNOWN
     Route: 065
  3. HUMULIN N [Suspect]
     Active Substance: INSULIN HUMAN
     Indication: DIABETES MELLITUS
     Dosage: 10 IU, QD
     Route: 058
     Dates: start: 201402

REACTIONS (10)
  - Anaemia [Unknown]
  - Fall [Unknown]
  - Mouth injury [Unknown]
  - Blood glucose increased [Recovered/Resolved]
  - Diarrhoea [Recovered/Resolved]
  - Gastrointestinal carcinoma [Unknown]
  - Haemorrhage [Unknown]
  - Dizziness [Unknown]
  - Haematochezia [Unknown]
  - Laceration [Unknown]

NARRATIVE: CASE EVENT DATE: 20140621
